FAERS Safety Report 5718282-2 (Version None)
Quarter: 2008Q2

REPORT INFORMATION
  Report Type: 
  Country: None (occurrence: None)
  Receive Date: 20080425
  Receipt Date: 20070531
  Transmission Date: 20081010
  Serious: No
  Sender: FDA-Public Use
  Company Number: US-ASTRAZENECA-2007UW13262

PATIENT
  Age: 26 Year
  Sex: Female

DRUGS (5)
  1. ZOMIG [Suspect]
     Indication: MIGRAINE
     Route: 048
  2. ZOMIG [Suspect]
     Route: 048
  3. TEGRETOL [Concomitant]
  4. ZOLOFT [Concomitant]
  5. VITAMIN CAP [Concomitant]

REACTIONS (1)
  - CONVULSION [None]
